FAERS Safety Report 8001773-1 (Version None)
Quarter: 2011Q4

REPORT INFORMATION
  Report Type: 
  Country: None (occurrence: None)
  Receive Date: 20111222
  Receipt Date: 20111215
  Transmission Date: 20120403
  Serious: No
  Sender: FDA-Public Use
  Company Number: US-B.I. PHARMACEUTICALS,INC./RIDGEFIELD-2011-BP-25299BP

PATIENT
  Sex: Female

DRUGS (3)
  1. LUTEN [Concomitant]
     Indication: EYE DISORDER
  2. ZANTAC 150 [Suspect]
     Indication: ANTACID THERAPY
     Route: 048
  3. POTASSIUM [Concomitant]
     Indication: MUSCLE SPASMS

REACTIONS (1)
  - PRURITUS [None]
